FAERS Safety Report 7835487-5 (Version None)
Quarter: 2011Q4

REPORT INFORMATION
  Report Type: 
  Country: None (occurrence: None)
  Receive Date: 20111024
  Receipt Date: 20111017
  Transmission Date: 20120403
  Serious: Yes (Life-Threatening)
  Sender: FDA-Public Use
  Company Number: JP-BAYER-2011-042114

PATIENT
  Age: 45 Year
  Sex: Male
  Weight: 52 kg

DRUGS (8)
  1. ALLOPURINOL [Suspect]
     Indication: HYPERURICAEMIA
     Dosage: DAILY DOSE 100 MG
     Route: 048
  2. CALCIUM CARBONATE [Suspect]
     Indication: HYPERPHOSPHATAEMIA
     Dosage: DAILY DOSE 3000 MG
     Route: 048
  3. KAYEXALATE [Suspect]
     Indication: HYPERKALAEMIA
     Dosage: DAILY DOSE 15 G
     Route: 048
  4. CINACALCET HYDROCHLORIDE [Suspect]
     Indication: HYPERPARATHYROIDISM SECONDARY
     Dosage: DAILY DOSE 25 MG
     Route: 048
  5. SEVELAMER HYDROCHLORIDE [Suspect]
     Indication: HYPERPHOSPHATAEMIA
     Dosage: DAILY DOSE 2250 MG
     Route: 048
  6. NEXAVAR [Suspect]
     Indication: RENAL CELL CARCINOMA
     Dosage: 200 MG, QD
     Route: 048
     Dates: start: 20110512, end: 20110515
  7. TICLOPIDINE HCL [Suspect]
     Dosage: DAILY DOSE 200 MG
     Route: 048
  8. ZANTAC [Suspect]
     Indication: GASTRITIS
     Dosage: DAILY DOSE 300 MG
     Route: 048

REACTIONS (1)
  - INTERSTITIAL LUNG DISEASE [None]
